FAERS Safety Report 23164394 (Version 6)
Quarter: 2025Q2

REPORT INFORMATION
  Report Type: Spontaneous
  Country: US (occurrence: US)
  Receive Date: 20231109
  Receipt Date: 20250519
  Transmission Date: 20250717
  Serious: Yes (Hospitalization, Other)
  Sender: INSMED
  Company Number: US-INSMED, INC.-2023-01517-US

PATIENT
  Sex: Female

DRUGS (3)
  1. ARIKAYCE [Suspect]
     Active Substance: AMIKACIN
     Indication: Bacterial disease carrier
     Route: 055
     Dates: start: 20220831, end: 2023
  2. ARIKAYCE [Suspect]
     Active Substance: AMIKACIN
     Indication: Bronchiectasis
     Route: 055
     Dates: start: 2023, end: 2023
  3. ARIKAYCE [Suspect]
     Active Substance: AMIKACIN
     Route: 055
     Dates: start: 2023, end: 20240506

REACTIONS (11)
  - Hospitalisation [Unknown]
  - Terminal state [Not Recovered/Not Resolved]
  - Swelling face [Unknown]
  - Abscess [Unknown]
  - Visual impairment [Unknown]
  - Living in residential institution [Unknown]
  - Adverse drug reaction [Unknown]
  - Off label use [Unknown]
  - Intentional dose omission [Unknown]
  - Product dose omission issue [Unknown]
  - Therapy interrupted [Unknown]
